FAERS Safety Report 9021980 (Version 1)
Quarter: 2013Q1

REPORT INFORMATION
  Report Type: Spontaneous
  Country: IT (occurrence: IT)
  Receive Date: 20130118
  Receipt Date: 20130118
  Transmission Date: 20140127
  Serious: Yes (Other)
  Sender: FDA-Public Use
  Company Number: IT-SANOFI-AVENTIS-2013SA002526

PATIENT
  Age: 78 Year
  Sex: Female

DRUGS (11)
  1. LASIX [Suspect]
     Indication: PALPITATIONS
     Route: 048
     Dates: start: 20121104, end: 20121104
  2. CARVASIN [Suspect]
     Indication: PALPITATIONS
     Dosage: STRENGTH: 5 MG
     Route: 060
     Dates: start: 20121104, end: 20121104
  3. CARVEDILOL [Concomitant]
     Route: 048
     Dates: start: 20120814, end: 20121104
  4. NITROGLYCERIN ^SLOVAKOFARMA^ [Concomitant]
     Route: 062
     Dates: start: 20120814, end: 20121104
  5. OPTINATE [Concomitant]
     Dosage: STRENGTH: 35MG
  6. LANOXIN [Concomitant]
     Dosage: STRENGTH: 0.0625MG
     Route: 048
     Dates: start: 20120814, end: 20121104
  7. DELTACORTENE [Concomitant]
     Dosage: STRENGTH: 5MG
     Route: 048
     Dates: start: 20120814, end: 20121104
  8. COLECALCIFEROL [Concomitant]
     Dosage: (DIBASE 10.000 UI(ML ORAL DROPS)
     Route: 048
  9. CARDIRENE [Concomitant]
     Dosage: STRENGTH: 160MG
     Route: 048
     Dates: start: 20120814, end: 20121104
  10. BUPRENORPHINE HYDROCHLORIDE [Concomitant]
     Dosage: 35 MCG/H PATCH
     Route: 048
     Dates: start: 20120814, end: 20121104
  11. LANSOX [Concomitant]
     Route: 048
     Dates: start: 20120814, end: 20121104

REACTIONS (4)
  - Rib fracture [Recovering/Resolving]
  - Syncope [Recovering/Resolving]
  - Incorrect dose administered [Unknown]
  - Head injury [Recovering/Resolving]
